FAERS Safety Report 6694048-4 (Version None)
Quarter: 2010Q2

REPORT INFORMATION
  Report Type: 
  Country: None (occurrence: None)
  Receive Date: 20100423
  Receipt Date: 20100413
  Transmission Date: 20101027
  Serious: Yes (Death, Hospitalization)
  Sender: FDA-Public Use
  Company Number: JP-SANOFI-AVENTIS-2009SA000619

PATIENT
  Age: 64 Year
  Sex: Female
  Weight: 52.5 kg

DRUGS (14)
  1. OXALIPLATIN [Suspect]
     Indication: COLORECTAL CANCER
     Route: 041
     Dates: start: 20090807, end: 20090807
  2. OXALIPLATIN [Suspect]
     Route: 041
     Dates: start: 20090915, end: 20090915
  3. SUNITINIB MALATE [Suspect]
     Indication: COLORECTAL CANCER
     Dosage: 25 MG DAILY, EVERYDAY, 4 WEEKS ON AND 2 WEEKS OFF
     Route: 048
     Dates: start: 20090807
  4. SUNITINIB MALATE [Suspect]
     Dosage: 25 MG DAILY, EVERYDAY 4 WEEKS ON AND 2 WEEKS OFF
     Route: 048
     Dates: start: 20090915, end: 20090928
  5. FLUOROURACIL [Suspect]
     Indication: COLORECTAL CANCER
     Route: 041
     Dates: start: 20090807, end: 20090807
  6. FLUOROURACIL [Suspect]
     Route: 041
     Dates: start: 20090915, end: 20090917
  7. CALCIUM LEVOFOLINATE [Suspect]
     Indication: COLORECTAL CANCER
     Route: 041
     Dates: start: 20090807, end: 20090807
  8. CALCIUM LEVOFOLINATE [Suspect]
     Route: 041
     Dates: start: 20090915, end: 20090915
  9. LAC B [Concomitant]
     Route: 048
     Dates: start: 20090623, end: 20091001
  10. SODIUM GUALENATE [Concomitant]
     Indication: STOMATITIS
     Route: 050
     Dates: start: 20090821, end: 20090929
  11. SODIUM ALGINATE [Concomitant]
     Indication: OESOPHAGITIS
     Route: 048
     Dates: start: 20090827, end: 20091001
  12. ORADOL [Concomitant]
     Indication: PAIN
     Route: 048
     Dates: start: 20090827, end: 20091001
  13. GENTAMICIN [Concomitant]
     Indication: DERMATITIS
     Route: 062
     Dates: start: 20090813, end: 20090929
  14. GASTER [Concomitant]
     Indication: GASTRITIS PROPHYLAXIS
     Route: 048
     Dates: start: 20090924, end: 20091001

REACTIONS (1)
  - LEFT VENTRICULAR DYSFUNCTION [None]
